FAERS Safety Report 5954688-4 (Version None)
Quarter: 2008Q4

REPORT INFORMATION
  Report Type: 
  Country: None (occurrence: None)
  Receive Date: 20081113
  Receipt Date: 20081029
  Transmission Date: 20090506
  Serious: Yes (Hospitalization)
  Sender: FDA-Public Use
  Company Number: 2008PL000180

PATIENT
  Age: 48 Year

DRUGS (1)
  1. AZATHIOPRINE [Suspect]
     Indication: CROHN'S DISEASE

REACTIONS (9)
  - ASCITES [None]
  - FATIGUE [None]
  - HEPATIC CYST [None]
  - HEPATOSPLENOMEGALY [None]
  - HYPERBILIRUBINAEMIA [None]
  - JAUNDICE [None]
  - NODULAR REGENERATIVE HYPERPLASIA [None]
  - PANCYTOPENIA [None]
  - TRANSAMINASES INCREASED [None]
